FAERS Safety Report 16146382 (Version 3)
Quarter: 2019Q2

REPORT INFORMATION
  Report Type: Spontaneous
  Country: US (occurrence: US)
  Receive Date: 20190402
  Receipt Date: 20190412
  Transmission Date: 20190711
  Serious: Yes (Other)
  Sender: FDA-Public Use
  Company Number: US-PFIZER INC-2019136206

PATIENT
  Age: 44 Year
  Sex: Male
  Weight: 77.98 kg

DRUGS (2)
  1. CELEBREX [Suspect]
     Active Substance: CELECOXIB
     Indication: ARTHRALGIA
     Dosage: 200 MG, 1X/DAY
     Route: 048
     Dates: start: 201801, end: 201804
  2. CELEBREX [Suspect]
     Active Substance: CELECOXIB
     Indication: PAIN IN EXTREMITY

REACTIONS (9)
  - Hypersensitivity [Unknown]
  - Cerebrovascular accident [Unknown]
  - Somnolence [Recovering/Resolving]
  - Fatigue [Recovering/Resolving]
  - Neuralgia [Recovering/Resolving]
  - Drug ineffective [Not Recovered/Not Resolved]
  - Hemiplegia [Recovered/Resolved]
  - Immune system disorder [Recovering/Resolving]
  - Nasopharyngitis [Recovered/Resolved]

NARRATIVE: CASE EVENT DATE: 2018
